FAERS Safety Report 9360014 (Version 1)
Quarter: 2013Q2

REPORT INFORMATION
  Report Type: Spontaneous
  Country: FR (occurrence: FR)
  Receive Date: 20130621
  Receipt Date: 20130621
  Transmission Date: 20140414
  Serious: Yes (Hospitalization)
  Sender: FDA-Public Use
  Company Number: PHHY2013FR063005

PATIENT
  Age: 34 Year
  Sex: Male

DRUGS (1)
  1. LEPONEX [Suspect]
     Dosage: 100 MG, QD
     Route: 048
     Dates: start: 201302, end: 201304

REACTIONS (4)
  - Splenomegaly [Unknown]
  - Hepatocellular injury [Recovered/Resolved]
  - Eosinophilia [Recovered/Resolved]
  - Diarrhoea [Unknown]
